FAERS Safety Report 10398366 (Version 2)
Quarter: 2014Q3

REPORT INFORMATION
  Report Type: Report from Study
  Country: BR (occurrence: BR)
  Receive Date: 20140821
  Receipt Date: 20140904
  Transmission Date: 20150326
  Serious: Yes (Other)
  Sender: FDA-Public Use
  Company Number: BR-ORION CORPORATION ORION PHARMA-ENTC2014-0307

PATIENT
  Sex: Male
  Weight: 73 kg

DRUGS (5)
  1. STALEVO [Suspect]
     Active Substance: CARBIDOPA\ENTACAPONE\LEVODOPA
     Indication: PARKINSON^S DISEASE
     Dosage: STRENGTH: 100 MG
     Route: 065
  2. EXELON [Suspect]
     Active Substance: RIVASTIGMINE TARTRATE
     Indication: MEMORY IMPAIRMENT
     Route: 030
     Dates: start: 2012, end: 2013
  3. PROLOPA [Suspect]
     Active Substance: BENSERAZIDE\LEVODOPA
     Indication: PARKINSON^S DISEASE
     Dosage: 1/4 TABLET AT 12 PM, 1/4 TABLET IN THE AFTERNOON AND 3/4 AT NIGHT; STRENGTH: 100 MG
     Route: 048
  4. PRADAXA [Suspect]
     Active Substance: DABIGATRAN ETEXILATE MESYLATE
     Indication: ANTICOAGULANT THERAPY
     Route: 048
  5. SIFROL [Suspect]
     Active Substance: PRAMIPEXOLE
     Indication: PARKINSON^S DISEASE
     Dosage: 0.5 TABLET AT LUNCH AND 1 TABLET AT NIGHT; STRENGTH: 1 MG
     Route: 048

REACTIONS (3)
  - Dizziness [Recovered/Resolved]
  - Pulmonary embolism [Recovered/Resolved]
  - Weight decreased [Not Recovered/Not Resolved]
